FAERS Safety Report 24058674 (Version 2)
Quarter: 2024Q3

REPORT INFORMATION
  Report Type: Spontaneous
  Country: US (occurrence: US)
  Receive Date: 20240708
  Receipt Date: 20240905
  Transmission Date: 20241016
  Serious: No
  Sender: BLUEPRINT MEDICINES
  Company Number: US-Blueprint Medicines Corporation-4089

PATIENT
  Sex: Female

DRUGS (2)
  1. AYVAKIT [Suspect]
     Active Substance: AVAPRITINIB
     Indication: Systemic mastocytosis
     Route: 048
     Dates: start: 20240521
  2. AYVAKIT [Suspect]
     Active Substance: AVAPRITINIB
     Route: 048
     Dates: start: 20240521

REACTIONS (10)
  - Alopecia [Unknown]
  - Swelling face [Unknown]
  - Eye swelling [Unknown]
  - Paraesthesia oral [Unknown]
  - Asthenia [Recovering/Resolving]
  - Headache [Recovering/Resolving]
  - White blood cell count increased [Unknown]
  - Urine analysis abnormal [Recovering/Resolving]
  - Blood pressure abnormal [Recovering/Resolving]
  - COVID-19 [Unknown]
